FAERS Safety Report 21919417 (Version 3)
Quarter: 2023Q1

REPORT INFORMATION
  Report Type: Report from Study
  Country: JP (occurrence: JP)
  Receive Date: 20230127
  Receipt Date: 20230224
  Transmission Date: 20230417
  Serious: Yes (Death, Other)
  Sender: FDA-Public Use
  Company Number: JP-SA-2023SA029401

PATIENT
  Sex: Male

DRUGS (7)
  1. OXALIPLATIN [Suspect]
     Active Substance: OXALIPLATIN
     Indication: Adenocarcinoma pancreas
     Dosage: 85 MG/M2, QOW, 2-HOUR INTRAVENOUS INFUSION
     Route: 042
     Dates: start: 20190618, end: 20190819
  2. LEUCOVORIN [Suspect]
     Active Substance: LEUCOVORIN
     Indication: Adenocarcinoma pancreas
     Dosage: 200 MG/M2, QOW
     Route: 042
     Dates: start: 20190618, end: 20190819
  3. IRINOTECAN [Suspect]
     Active Substance: IRINOTECAN
     Indication: Adenocarcinoma pancreas
     Dosage: 150 MG/M2, QOW, 90-MINUTE INTRAVENOUS INFUSION
     Route: 042
     Dates: start: 20190618, end: 20190819
  4. FLUOROURACIL [Suspect]
     Active Substance: FLUOROURACIL
     Indication: Adenocarcinoma pancreas
     Dosage: 2400 MG/M2, QOW, CONTINUOUS 46-HOUR INTRAVENOUS INFUSION
     Dates: start: 20190618, end: 20190819
  5. PALONOSETRON [Concomitant]
     Active Substance: PALONOSETRON
     Indication: Prophylaxis of nausea and vomiting
     Dosage: UNK
     Dates: start: 20190618, end: 20190819
  6. APREPITANT [Concomitant]
     Active Substance: APREPITANT
     Indication: Prophylaxis of nausea and vomiting
     Dosage: UNK
     Dates: start: 20190618, end: 20190819
  7. DEXAMETHASONE [Concomitant]
     Active Substance: DEXAMETHASONE
     Indication: Prophylaxis of nausea and vomiting
     Dosage: UNK
     Dates: start: 20190618, end: 20190819

REACTIONS (2)
  - Cholangitis [Fatal]
  - Septic shock [Fatal]
